FAERS Safety Report 15450822 (Version 1)
Quarter: 2018Q3

REPORT INFORMATION
  Report Type: Spontaneous
  Country: US (occurrence: US)
  Receive Date: 20180926
  Receipt Date: 20180926
  Transmission Date: 20181010
  Serious: No
  Sender: FDA-Public Use
  Company Number: None

PATIENT
  Age: 58 Year
  Sex: Female

DRUGS (4)
  1. ENBREL [Suspect]
     Active Substance: ETANERCEPT
     Indication: RHEUMATOID ARTHRITIS
     Route: 058
     Dates: start: 20160311
  2. TRAMADOL. [Concomitant]
     Active Substance: TRAMADOL
  3. METHOTRAXATE [Concomitant]
  4. METROPROLOL [Concomitant]
     Active Substance: METOPROLOL

REACTIONS (2)
  - Drug hypersensitivity [None]
  - Skin irritation [None]
